FAERS Safety Report 20123509 (Version 1)
Quarter: 2021Q4

REPORT INFORMATION
  Report Type: Other
  Country: CA (occurrence: CA)
  Receive Date: 20211129
  Receipt Date: 20211129
  Transmission Date: 20220304
  Serious: Yes (Hospitalization)
  Sender: FDA-Public Use
  Company Number: CA-LUPIN PHARMACEUTICALS INC.-2021-23117

PATIENT
  Age: 5 Year
  Sex: Female
  Weight: 19 kg

DRUGS (1)
  1. CEPHALEXIN [Suspect]
     Active Substance: CEPHALEXIN
     Indication: Infected cyst
     Dosage: 3.8 MILLILITER, 3 EVERY 1 DAYS, SUSPENSION
     Route: 002

REACTIONS (3)
  - Rash pruritic [Unknown]
  - Rash papular [Unknown]
  - Rash [Unknown]
